FAERS Safety Report 5441056-7 (Version None)
Quarter: 2007Q3

REPORT INFORMATION
  Report Type: 
  Country: None (occurrence: None)
  Receive Date: 20070831
  Receipt Date: 20070820
  Transmission Date: 20080115
  Serious: Yes (Hospitalization, Disabling, Other)
  Sender: FDA-Public Use
  Company Number: US-PFIZER INC-2007043348

PATIENT
  Sex: Male
  Weight: 81.6 kg

DRUGS (1)
  1. CELEBREX [Suspect]
     Indication: BACK PAIN

REACTIONS (7)
  - AMNESIA [None]
  - BRAIN DAMAGE [None]
  - CEREBRAL ARTERIOSCLEROSIS [None]
  - MUSCLE ATROPHY [None]
  - PAIN IN EXTREMITY [None]
  - SYNCOPE [None]
  - VENTRICULAR HYPERTROPHY [None]
